FAERS Safety Report 10073502 (Version 1)
Quarter: 2014Q2

REPORT INFORMATION
  Report Type: Spontaneous
  Country: TR (occurrence: TR)
  Receive Date: 20140411
  Receipt Date: 20140411
  Transmission Date: 20141212
  Serious: Yes (Other)
  Sender: FDA-Public Use
  Company Number: TR-ACTAVIS-2014-06949

PATIENT
  Age: 22 Year
  Sex: Female

DRUGS (2)
  1. CARBAMAZEPINE (UNKNOWN) [Suspect]
     Indication: PARTIAL SEIZURES
     Dosage: 600 MG, BID
     Route: 065
  2. CARBAMAZEPINE (UNKNOWN) [Suspect]
     Indication: EPILEPSY
     Dosage: UNK
     Route: 065

REACTIONS (2)
  - Hypoacusis [Recovering/Resolving]
  - Fatigue [Unknown]
